FAERS Safety Report 8830183 (Version 1)
Quarter: 2012Q4

REPORT INFORMATION
  Report Type: 
  Country: KR (occurrence: KR)
  Receive Date: 20121008
  Receipt Date: 20121008
  Transmission Date: 20130627
  Serious: Yes (Hospitalization)
  Sender: FDA-Public Use
  Company Number: KR-BAXTER-2012BAX018566

PATIENT
  Age: 70 Year
  Sex: Male
  Weight: 71 kg

DRUGS (11)
  1. DIANEAL-N PD-2 1.5% [Suspect]
     Indication: AUTOMATED PERITONEAL DIALYSIS
     Route: 033
     Dates: start: 20110421, end: 20120919
  2. DIANEAL PD-2 CON DEXTROSA AL 1,5%. [Suspect]
     Indication: CHRONIC RENAL FAILURE
     Route: 033
     Dates: start: 20120926
  3. EXTRANEAL [Suspect]
     Indication: AUTOMATED PERITONEAL DIALYSIS
     Route: 033
     Dates: start: 20110421, end: 20120919
  4. EXTRANEAL [Suspect]
     Indication: CAPD
     Route: 033
     Dates: start: 20120919, end: 20120926
  5. EXTRANEAL [Suspect]
     Indication: CHRONIC RENAL FAILURE
     Route: 033
     Dates: start: 20120926
  6. PHYSIONEAL [Suspect]
     Indication: CAPD
     Route: 033
     Dates: start: 20120919, end: 20120926
  7. PHYSIONEAL [Suspect]
     Indication: CHRONIC RENAL FAILURE
  8. CILAZAPRIL [Concomitant]
     Indication: HYPERTENSION
     Route: 048
  9. DILATREND [Concomitant]
     Indication: HYPERTENSION
     Route: 048
  10. OLMETEC [Concomitant]
     Indication: HYPERTENSION
     Route: 048
  11. BASEN [Concomitant]
     Indication: DIABETES MELLITUS
     Route: 048

REACTIONS (3)
  - Myelopathy [Recovered/Resolved]
  - Fall [Unknown]
  - Hyperglycaemia [Recovered/Resolved]
